FAERS Safety Report 6303786-4 (Version None)
Quarter: 2009Q3

REPORT INFORMATION
  Report Type: 
  Country: None (occurrence: None)
  Receive Date: 20090805
  Receipt Date: 20090724
  Transmission Date: 20100115
  Serious: Yes (Other)
  Sender: FDA-Public Use
  Company Number: 2009AP002832

PATIENT
  Age: 71 Year
  Sex: Male

DRUGS (5)
  1. DILTIAZEM HCL [Suspect]
  2. NIACIN [Suspect]
  3. CLOPIDOGREL [Concomitant]
  4. CILOSTAZOL [Concomitant]
  5. ASPIRIN [Concomitant]

REACTIONS (5)
  - HYPERGLYCAEMIA [None]
  - HYPERINSULINAEMIA [None]
  - HYPOGLYCAEMIA [None]
  - INSULIN AUTOIMMUNE SYNDROME [None]
  - ROAD TRAFFIC ACCIDENT [None]
